FAERS Safety Report 16743266 (Version 1)
Quarter: 2019Q3

REPORT INFORMATION
  Report Type: Report from Study
  Country: None (occurrence: US)
  Receive Date: 20190827
  Receipt Date: 20190827
  Transmission Date: 20191005
  Serious: Yes (Other)
  Sender: FDA-Public Use
  Company Number: US-ABBVIE-19K-163-2820388-00

PATIENT
  Age: 59 Year
  Sex: Female
  Weight: 72.64 kg

DRUGS (2)
  1. HUMIRA [Suspect]
     Active Substance: ADALIMUMAB
     Indication: PSORIATIC ARTHROPATHY
  2. HUMIRA [Suspect]
     Active Substance: ADALIMUMAB
     Indication: COLITIS ULCERATIVE
     Route: 058
     Dates: start: 20180418

REACTIONS (6)
  - Injection site pain [Unknown]
  - Gait disturbance [Unknown]
  - Spinal disorder [Unknown]
  - Arthralgia [Unknown]
  - Spinal fusion surgery [Unknown]
  - Back pain [Unknown]

NARRATIVE: CASE EVENT DATE: 201901
